FAERS Safety Report 7709013-5 (Version None)
Quarter: 2011Q3

REPORT INFORMATION
  Report Type: 
  Country: None (occurrence: None)
  Receive Date: 20110825
  Receipt Date: 20110819
  Transmission Date: 20111222
  Serious: Yes (Death)
  Sender: FDA-Public Use
  Company Number: CA-ROCHE-783141

PATIENT
  Sex: Male

DRUGS (6)
  1. LEVITRA [Concomitant]
     Dates: start: 20110127, end: 20110325
  2. PEGINTERFERON ALFA-2A [Suspect]
     Route: 058
     Dates: start: 20100921, end: 20110215
  3. ZOPICLONE [Concomitant]
     Dates: start: 20080101, end: 20110325
  4. BLINDED BMS-790052 (HCV NS5A INHIBITOR) [Suspect]
     Indication: HEPATITIS C
     Route: 048
     Dates: start: 20100921, end: 20110215
  5. TYLENOL-500 [Concomitant]
     Dates: end: 20110323
  6. RIBAVIRIN [Suspect]
     Dosage: FREQUENCY:DAILY
     Route: 048
     Dates: start: 20100921, end: 20110215

REACTIONS (1)
  - INTRAVENTRICULAR HAEMORRHAGE [None]
